FAERS Safety Report 9686745 (Version 2)
Quarter: 2013Q4

REPORT INFORMATION
  Report Type: Spontaneous
  Country: IT (occurrence: IT)
  Receive Date: 20131113
  Receipt Date: 20131227
  Transmission Date: 20140711
  Serious: Yes (Hospitalization)
  Sender: FDA-Public Use
  Company Number: IT-PFIZER INC-2013321652

PATIENT
  Age: 38 Year
  Sex: Female

DRUGS (2)
  1. SALAZOPYRIN EN [Suspect]
     Indication: PSORIATIC ARTHROPATHY
     Dosage: 1 G, DAILY
     Route: 048
     Dates: start: 20130915, end: 20131026
  2. CIPROFLOXACIN [Concomitant]
     Indication: BACTERIAL INFECTION
     Dosage: 1 G, UNK
     Route: 048
     Dates: start: 20131016, end: 20131018

REACTIONS (4)
  - Angioedema [Recovering/Resolving]
  - Pruritus [Recovering/Resolving]
  - Pyrexia [Recovering/Resolving]
  - Rash morbilliform [Recovering/Resolving]
